FAERS Safety Report 8005101-7 (Version None)
Quarter: 2011Q4

REPORT INFORMATION
  Report Type: 
  Country: None (occurrence: None)
  Receive Date: 20111223
  Receipt Date: 20111212
  Transmission Date: 20120403
  Serious: Yes (Hospitalization)
  Sender: FDA-Public Use
  Company Number: PHHY2011US42313

PATIENT
  Sex: Female

DRUGS (3)
  1. TASIGNA [Suspect]
     Indication: CHRONIC MYELOID LEUKAEMIA
     Dosage: 400 MG, BID
     Route: 048
  2. TASIGNA [Suspect]
     Dosage: 400 MG, BID
     Route: 048
     Dates: start: 20110613
  3. TASIGNA [Suspect]
     Dosage: UNK UKN, UNK
     Dates: start: 20110524

REACTIONS (3)
  - NEOPLASM MALIGNANT [None]
  - HEMIPARESIS [None]
  - BRAIN NEOPLASM [None]
